FAERS Safety Report 8560428-5 (Version None)
Quarter: 2012Q3

REPORT INFORMATION
  Report Type: 
  Country: None (occurrence: None)
  Receive Date: 20120802
  Receipt Date: 20120727
  Transmission Date: 20120928
  Serious: Yes (Other)
  Sender: FDA-Public Use
  Company Number: JP-009507513-1207JPN010967

PATIENT

DRUGS (6)
  1. PEG-INTRON [Suspect]
     Dosage: 1.2 MCG/KG/WEEK
     Route: 058
     Dates: start: 20120420, end: 20120601
  2. PEG-INTRON [Suspect]
     Indication: HEPATITIS C
     Dosage: 1.5 MCG/KG/WEEK
     Route: 058
     Dates: start: 20120330, end: 20120413
  3. REBETOL [Suspect]
     Route: 048
     Dates: start: 20120510, end: 20120518
  4. REBETOL [Suspect]
     Indication: HEPATITIS C
     Route: 048
     Dates: start: 20120330, end: 20120509
  5. PRIMPERAN TAB [Concomitant]
     Indication: PROPHYLAXIS
     Dosage: 5MG/DAY AS NEEDED
     Route: 048
     Dates: start: 20120331, end: 20120412
  6. TELAVIC [Suspect]
     Indication: HEPATITIS C
     Route: 048
     Dates: start: 20120330, end: 20120604

REACTIONS (1)
  - RETINOPATHY [None]
